FAERS Safety Report 4432508-7 (Version None)
Quarter: 2004Q3

REPORT INFORMATION
  Report Type: 
  Country: None (occurrence: None)
  Receive Date: 20040825
  Receipt Date: 20040816
  Transmission Date: 20050211
  Serious: Yes (Death, Life-Threatening)
  Sender: FDA-Public Use
  Company Number: JP-BRISTOL-MYERS SQUIBB COMPANY-12672713

PATIENT
  Age: 67 Year
  Sex: Male

DRUGS (4)
  1. TAXOL [Suspect]
     Indication: HEPATIC NEOPLASM MALIGNANT
     Route: 042
     Dates: start: 20040809, end: 20040809
  2. PARAPLATIN [Suspect]
     Indication: HEPATIC NEOPLASM MALIGNANT
     Route: 042
     Dates: start: 20040809, end: 20040809
  3. SODIUM ALGINATE [Concomitant]
  4. HALOPERIDOL [Concomitant]

REACTIONS (1)
  - HEPATIC FAILURE [None]
